FAERS Safety Report 5464615-4 (Version None)
Quarter: 2007Q3

REPORT INFORMATION
  Report Type: 
  Country: None (occurrence: None)
  Receive Date: 20070820
  Receipt Date: 20070516
  Transmission Date: 20080115
  Serious: No
  Sender: FDA-Public Use
  Company Number: WAES 0705USA03251

PATIENT

DRUGS (2)
  1. JANUVIA [Suspect]
     Indication: BLOOD GLUCOSE
     Dosage: PO
     Route: 048
  2. METHOTREXATE [Concomitant]

REACTIONS (2)
  - ASTHENIA [None]
  - DIZZINESS [None]
